FAERS Safety Report 7333252-9 (Version None)
Quarter: 2011Q1

REPORT INFORMATION
  Report Type: 
  Country: None (occurrence: None)
  Receive Date: 20110222
  Receipt Date: 20110207
  Transmission Date: 20110831
  Serious: Yes (Hospitalization)
  Sender: FDA-Public Use
  Company Number: 2011AP000225

PATIENT
  Sex: Male

DRUGS (3)
  1. PAROXETINE HCL [Suspect]
     Indication: OBSESSIVE-COMPULSIVE DISORDER
     Dosage: 75 MG
  2. RISPERIDONE [Suspect]
     Indication: OBSESSIVE-COMPULSIVE DISORDER
     Dosage: 7.5 MG
  3. DESMOPRESSIN (DESMOPRESSIN) [Suspect]
     Indication: ILL-DEFINED DISORDER

REACTIONS (14)
  - PAIN [None]
  - AGITATION [None]
  - BLOOD CREATINE PHOSPHOKINASE INCREASED [None]
  - DISORIENTATION [None]
  - VOMITING [None]
  - CONFUSIONAL STATE [None]
  - INCONTINENCE [None]
  - PYREXIA [None]
  - PETECHIAE [None]
  - MUSCLE RIGIDITY [None]
  - CONDITION AGGRAVATED [None]
  - EPILEPSY [None]
  - OFF LABEL USE [None]
  - PSYCHOTIC DISORDER [None]
